FAERS Safety Report 6312728-7 (Version None)
Quarter: 2009Q3

REPORT INFORMATION
  Report Type: 
  Country: None (occurrence: None)
  Receive Date: 20090818
  Receipt Date: 20090805
  Transmission Date: 20100115
  Serious: Yes (Hospitalization)
  Sender: FDA-Public Use
  Company Number: NL-RANBAXY-2009RR-26205

PATIENT
  Age: 62 Year
  Sex: Female

DRUGS (6)
  1. METFORMIN [Suspect]
     Indication: TYPE 2 DIABETES MELLITUS
  2. GLUCOSE [Suspect]
     Indication: HYPOGLYCAEMIA
     Route: 040
  3. GLUCOSE [Suspect]
     Route: 042
  4. ENALAPRIL MALEATE [Concomitant]
  5. ATORVASTATIN CALCIUM [Concomitant]
  6. GLICLAZIDE [Concomitant]

REACTIONS (2)
  - DRUG INTERACTION [None]
  - LACTIC ACIDOSIS [None]
